FAERS Safety Report 9846457 (Version 1)
Quarter: 2014Q1

REPORT INFORMATION
  Report Type: Spontaneous
  Country: US (occurrence: None)
  Receive Date: 20140123
  Receipt Date: 20140123
  Transmission Date: 20141002
  Serious: Yes (Life-Threatening, Hospitalization, Disabling, Other)
  Sender: FDA-Public Use
  Company Number: None

PATIENT
  Age: 66 Year
  Sex: Female
  Weight: 44 kg

DRUGS (1)
  1. MIRALAX [Suspect]
     Indication: CONSTIPATION
     Dates: start: 20100114, end: 20140103

REACTIONS (7)
  - Renal failure chronic [None]
  - Kidney small [None]
  - Scar [None]
  - Flatulence [None]
  - Abnormal faeces [None]
  - Depression [None]
  - Mental disorder [None]
